FAERS Safety Report 9370293 (Version 2)
Quarter: 2013Q4

REPORT INFORMATION
  Report Type: Spontaneous
  Country: GB (occurrence: GB)
  Receive Date: 20130626
  Receipt Date: 20131028
  Transmission Date: 20140711
  Serious: Yes (Other)
  Sender: FDA-Public Use
  Company Number: GB-WATSON-2013-11207

PATIENT
  Age: 41 Year
  Sex: Male

DRUGS (5)
  1. FLUOXETINE (UNKNOWN) [Suspect]
     Indication: DEPRESSION
     Dosage: 60 MG, DAILY
     Route: 048
  2. CLOZARIL [Suspect]
     Indication: SCHIZOPHRENIA
     Dosage: 200 MG, QHS
     Route: 048
     Dates: end: 20130514
  3. CLOZARIL [Suspect]
     Dosage: UNK
     Route: 048
     Dates: start: 20020529
  4. CLOZARIL [Suspect]
     Dosage: UNK
     Route: 048
  5. DIAZEPAM [Concomitant]
     Indication: INSOMNIA
     Dosage: 8 MG, UNK
     Route: 048
     Dates: start: 20130526

REACTIONS (10)
  - Psychotic disorder [Recovering/Resolving]
  - Anxiety [Recovering/Resolving]
  - Depression [Recovering/Resolving]
  - Obsessive thoughts [Recovering/Resolving]
  - Balance disorder [Not Recovered/Not Resolved]
  - Basilar migraine [Not Recovered/Not Resolved]
  - Dizziness [Recovering/Resolving]
  - Migraine [Not Recovered/Not Resolved]
  - Neutrophil count decreased [Recovered/Resolved]
  - White blood cell count decreased [Recovered/Resolved]
